FAERS Safety Report 10573386 (Version 4)
Quarter: 2015Q1

REPORT INFORMATION
  Report Type: Spontaneous
  Country: JP (occurrence: JP)
  Receive Date: 20141110
  Receipt Date: 20150220
  Transmission Date: 20150720
  Serious: Yes (Life-Threatening, Other)
  Sender: FDA-Public Use
  Company Number: JP-UCBSA-2014017094

PATIENT
  Age: 4 Year
  Sex: Female

DRUGS (10)
  1. KEPPRA [Suspect]
     Active Substance: LEVETIRACETAM
     Indication: EPILEPSY
     Dosage: 100 MG, ONCE DAILY (QD); VIA NASOGASTRIC TUBE
     Dates: start: 20140825, end: 20140907
  2. LIORESAL [Concomitant]
     Active Substance: BACLOFEN
     Indication: PRODUCT USED FOR UNKNOWN INDICATION
     Dosage: DAILY DOSE: 10 MG
     Dates: start: 20130724
  3. L CARTIN [Concomitant]
     Indication: PRODUCT USED FOR UNKNOWN INDICATION
     Dosage: DAILY DOSE: 2 ML
  4. TERNELIN [Concomitant]
     Active Substance: TIZANIDINE
     Indication: PRODUCT USED FOR UNKNOWN INDICATION
     Dosage: DAILY DOSE: 0.8 MG
     Dates: start: 20130724
  5. PHENOBAL [Concomitant]
     Active Substance: PHENOBARBITAL
     Indication: PRODUCT USED FOR UNKNOWN INDICATION
     Dosage: DAILY DOSE: 0.6 G
     Dates: start: 20101201
  6. KEPPRA [Suspect]
     Active Substance: LEVETIRACETAM
     Dosage: 125 G, ONCE DAILY (QD)
     Route: 048
     Dates: start: 20140908, end: 20140911
  7. DEPAKENE [Concomitant]
     Active Substance: VALPROIC ACID
     Indication: PRODUCT USED FOR UNKNOWN INDICATION
     Dosage: DAILY DOSE: 0.8 G
     Dates: start: 20120801
  8. MUCODYNE-DS [Concomitant]
     Active Substance: CARBOCYSTEINE
     Indication: PRODUCT USED FOR UNKNOWN INDICATION
     Dosage: DAILY DOSE: 0.6 G
  9. KEPPRA [Suspect]
     Active Substance: LEVETIRACETAM
     Dosage: 100 MG DAILY
     Route: 048
     Dates: start: 20140912, end: 20140919
  10. KEPPRA [Suspect]
     Active Substance: LEVETIRACETAM
     Dosage: DAILY DOSE 50 MG
     Route: 048
     Dates: start: 20140920, end: 20140926

REACTIONS (5)
  - Pneumonia aspiration [Unknown]
  - Hyperphosphatasaemia [Not Recovered/Not Resolved]
  - Vomiting [Recovered/Resolved]
  - Nausea [Recovered/Resolved]
  - Hypertonia [Unknown]

NARRATIVE: CASE EVENT DATE: 20140907
